FAERS Safety Report 8416664-1 (Version None)
Quarter: 2012Q2

REPORT INFORMATION
  Report Type: 
  Country: None (occurrence: None)
  Receive Date: 20120323
  Receipt Date: 20110223
  Transmission Date: 20120825
  Serious: Yes (Other)
  Sender: FDA-Public Use
  Company Number: 163-21880-11023073

PATIENT
  Age: 85 Year
  Sex: Male

DRUGS (13)
  1. MEDROL [Concomitant]
  2. TRIAMCINOLONE [Concomitant]
  3. LASIX [Concomitant]
  4. REVLIMID [Suspect]
     Indication: MYELOFIBROSIS
     Dosage: 2.1429 MG, 3 IN 1 WK, PO ; 1.4286 MG, 2 IN 1 WK, PO ; 1.4286 MG, 2 IN 1 WK, PO
     Route: 048
     Dates: start: 20101210, end: 20110103
  5. REVLIMID [Suspect]
     Indication: SPLENOMEGALY
     Dosage: 2.1429 MG, 3 IN 1 WK, PO ; 1.4286 MG, 2 IN 1 WK, PO ; 1.4286 MG, 2 IN 1 WK, PO
     Route: 048
     Dates: start: 20101210, end: 20110103
  6. REVLIMID [Suspect]
     Indication: MYELOFIBROSIS
     Dosage: 2.1429 MG, 3 IN 1 WK, PO ; 1.4286 MG, 2 IN 1 WK, PO ; 1.4286 MG, 2 IN 1 WK, PO
     Route: 048
     Dates: start: 20100818
  7. REVLIMID [Suspect]
     Indication: SPLENOMEGALY
     Dosage: 2.1429 MG, 3 IN 1 WK, PO ; 1.4286 MG, 2 IN 1 WK, PO ; 1.4286 MG, 2 IN 1 WK, PO
     Route: 048
     Dates: start: 20100818
  8. REVLIMID [Suspect]
     Indication: MYELOFIBROSIS
     Dosage: 2.1429 MG, 3 IN 1 WK, PO ; 1.4286 MG, 2 IN 1 WK, PO ; 1.4286 MG, 2 IN 1 WK, PO
     Route: 048
     Dates: start: 20100929, end: 20101116
  9. REVLIMID [Suspect]
     Indication: SPLENOMEGALY
     Dosage: 2.1429 MG, 3 IN 1 WK, PO ; 1.4286 MG, 2 IN 1 WK, PO ; 1.4286 MG, 2 IN 1 WK, PO
     Route: 048
     Dates: start: 20100929, end: 20101116
  10. LEVOTHYROXINE SODIUM [Concomitant]
  11. PREDNISONE TAB [Concomitant]
  12. ARANESP [Concomitant]
  13. MEGACE [Concomitant]

REACTIONS (3)
  - GOUT [None]
  - PLATELET COUNT DECREASED [None]
  - RASH GENERALISED [None]
